FAERS Safety Report 9958821 (Version 2)
Quarter: 2014Q1

REPORT INFORMATION
  Report Type: Spontaneous
  Country: IT (occurrence: None)
  Receive Date: 20140227
  Receipt Date: 20140311
  Transmission Date: 20141002
  Serious: Yes (Other)
  Sender: FDA-Public Use
  Company Number: KAD201402-000273

PATIENT
  Age: 57 Year
  Sex: Male

DRUGS (3)
  1. RIBAVIRIN (RIBAVIRIN) [Suspect]
     Indication: CHRONIC HEPATITIS C
  2. PEGINTERFERON ALFA-2A (PEGINTERFERON ALFA-2A) [Suspect]
     Indication: CHRONIC HEPATITIS C
     Dosage: 180 MICROG WEEKLY
  3. BOCEPREVIR (BOCEPREVIR) [Suspect]
     Indication: CHRONIC HEPATITIS C
     Dosage: 800 MG THREE TIMES PER DAY

REACTIONS (3)
  - Grand mal convulsion [None]
  - Haemoglobin decreased [None]
  - Loss of consciousness [None]
